FAERS Safety Report 8115307-4 (Version None)
Quarter: 2012Q1

REPORT INFORMATION
  Report Type: 
  Country: None (occurrence: None)
  Receive Date: 20120206
  Receipt Date: 20120130
  Transmission Date: 20120608
  Serious: No
  Sender: FDA-Public Use
  Company Number: US-BAYER-2012-009351

PATIENT
  Age: 62 Year
  Sex: Female

DRUGS (1)
  1. CLIMARA [Suspect]

REACTIONS (1)
  - DRUG INEFFECTIVE [None]
